FAERS Safety Report 7583537-6 (Version None)
Quarter: 2011Q2

REPORT INFORMATION
  Report Type: 
  Country: None (occurrence: None)
  Receive Date: 20110630
  Receipt Date: 20110628
  Transmission Date: 20111010
  Serious: Yes (Hospitalization)
  Sender: FDA-Public Use
  Company Number: JP-ROCHE-782499

PATIENT
  Sex: Male

DRUGS (1)
  1. TOCILIZUMAB [Suspect]
     Dosage: INTRAVENOUS DRIP
     Route: 042
     Dates: start: 20100604

REACTIONS (2)
  - PYREXIA [None]
  - RASH [None]
